FAERS Safety Report 5832709-7 (Version None)
Quarter: 2008Q3

REPORT INFORMATION
  Report Type: 
  Country: None (occurrence: None)
  Receive Date: 20080804
  Receipt Date: 20080729
  Transmission Date: 20090109
  Serious: Yes (Other)
  Sender: FDA-Public Use
  Company Number: PHEH2008US06745

PATIENT
  Sex: Female

DRUGS (3)
  1. TEKTURNA [Suspect]
     Dosage: 150 MG, UNK
     Dates: start: 20080601
  2. TEKTURNA [Suspect]
     Dosage: UNK
  3. TEKTURNA [Suspect]
     Dosage: UNK
     Dates: start: 20080714, end: 20080717

REACTIONS (6)
  - ANXIETY [None]
  - ARTHRITIS [None]
  - CONFUSIONAL STATE [None]
  - DISTURBANCE IN ATTENTION [None]
  - GAIT DISTURBANCE [None]
  - PAIN [None]
